FAERS Safety Report 9352083 (Version 1)
Quarter: 2013Q2

REPORT INFORMATION
  Report Type: Spontaneous
  Country: DE (occurrence: None)
  Receive Date: 20130612
  Receipt Date: 20130612
  Transmission Date: 20140414
  Serious: Yes (Hospitalization, Disabling)
  Sender: FDA-Public Use
  Company Number: 1744099

PATIENT
  Age: 39 Year
  Sex: Male

DRUGS (17)
  1. GEMCITABINE [Suspect]
     Indication: THYMOMA MALIGNANT
     Dosage: 750 MG/M 2 MILLIGRAM(S)/SQ. METER ( CYCLICAL )
  2. GEMCITABINE [Suspect]
     Dosage: 750 MG/M 2 MILLIGRAM(S)/SQ. METER ( CYCLICAL )
  3. OXALIPLATIN [Suspect]
     Indication: THYMOMA MALIGNANT
     Dosage: 130 MG/M 2 MILLIGRAM(S)/SQ. METER ( CYCLICAL )
  4. DOXORUBICIN [Suspect]
     Indication: THYMOMA MALIGNANT
     Dosage: 50 MG/M 2 MILLIGRAM(S)/SQ. METER ( CYCLICAL )
  5. CISPLATIN [Suspect]
     Indication: THYMOMA MALIGNANT
     Dosage: 50 MG/M 2 MILLIGRAM(S)/SQ. METER ( CYCLICAL )
  6. GEMCITABINE [Suspect]
     Indication: THYMOMA MALIGNANT
     Dosage: 750 MG/M 2 MILLIGRAM(S)/SQ. METER ( 1 WEEK )
  7. CYCLOPHOSPHAMIDE [Suspect]
     Indication: THYMOMA MALIGNANT
     Dosage: 500 MG/M 2 MILLIGRAM(S)/SQ. METER ( CYCLICAL )
  8. PACLITAXEL [Suspect]
     Indication: THYMOMA MALIGNANT
     Dosage: 175 MG/M 2 MILLIGRAM(S)/SQ. METER ( UNKNOWN )
  9. IFOSFAMIDE [Suspect]
     Indication: THYMOMA MALIGNANT
     Dosage: 1000 MG/M 2 MILLIGRAM(S)/SQ. METER ( UNKNOWN )
  10. SORAFENIB [Suspect]
     Indication: THYMOMA MALIGNANT
     Dosage: 800 MG MILLIGRAM(S) ( 1 DAY )
  11. SUNITINIB [Suspect]
     Indication: THYMOMA MALIGNANT
     Dosage: 50 MG MILLIGRAM(S) ( 1 DAY )
  12. CAPECITABINE [Suspect]
     Indication: THYMOMA MALIGNANT
     Dosage: 2000 MG/M 2 MILLIGRAM(S)/SQ. METER ( CYCLICAL )
  13. CAPECITABINE [Suspect]
     Indication: THYMOMA MALIGNANT
     Dosage: 2000 MG/M 2 MILLIGRAM(S)/SQ. METER ( CYCLICAL )
  14. THALIDOMIDE [Suspect]
     Indication: THYMOMA MALIGNANT
     Dosage: 100 MG MILLIGRAM(S) ( 1 DAY )
  15. PREDNISOLONE [Suspect]
     Indication: THYMOMA MALIGNANT
  16. MITOMYCIN [Suspect]
     Indication: METASTASES TO LIVER
     Dosage: 1270 MG MILLIGRAM(S) ( UNKNOWN )
  17. TAXOTERE [Suspect]
     Indication: THYMOMA MALIGNANT
     Dosage: 75 MG/M 2 MILLIGRAM(S)/SQ. METER

REACTIONS (7)
  - Progressive multifocal leukoencephalopathy [None]
  - Muscle spasms [None]
  - Paraesthesia [None]
  - Dysaesthesia [None]
  - Disease progression [None]
  - Loss of consciousness [None]
  - Epilepsy [None]
